FAERS Safety Report 6932216 (Version 3)
Quarter: 2012Q4

REPORT INFORMATION
  Report Type: 
  Country: CN (occurrence: CN)
  Receive Date: 20090310
  Receipt Date: 20121217
  Transmission Date: 20130627
  Serious: Yes (Hospitalization)
  Sender: FDA-Public Use
  Company Number: PHHY2009CN07902

PATIENT
  Age: 30 Year
  Sex: Male

DRUGS (2)
  1. TEGRETOL [Suspect]
     Indication: EPILEPSY
     Dosage: 600 mg, daily
     Route: 048
     Dates: start: 20080315, end: 20080325
  2. TEGRETOL [Suspect]
     Dosage: UNK
     Dates: end: 20090318

REACTIONS (17)
  - Genital herpes [Recovered/Resolved]
  - Oral herpes [Recovered/Resolved]
  - Stevens-Johnson syndrome [Recovered/Resolved]
  - Rash generalised [Recovered/Resolved]
  - Pruritus [Recovered/Resolved]
  - Pyrexia [Recovered/Resolved]
  - Mouth ulceration [Recovered/Resolved]
  - Oral mucosa erosion [Recovered/Resolved]
  - Blister [Recovered/Resolved]
  - Conjunctival hyperaemia [Recovered/Resolved]
  - Conjunctival oedema [Recovered/Resolved]
  - Swelling face [Recovered/Resolved]
  - Urine ketone body present [Recovered/Resolved]
  - Gamma-glutamyltransferase increased [Recovered/Resolved]
  - Alanine aminotransferase increased [Recovered/Resolved]
  - Hepatomegaly [Recovered/Resolved]
  - White blood cell count increased [Recovered/Resolved]
